FAERS Safety Report 8456340 (Version 3)
Quarter: 2016Q1

REPORT INFORMATION
  Report Type: Spontaneous
  Country: FR (occurrence: FR)
  Receive Date: 20120313
  Receipt Date: 20160211
  Transmission Date: 20160526
  Serious: Yes (Hospitalization, Other)
  Sender: FDA-Public Use
  Company Number: FR-BRISTOL-MYERS SQUIBB COMPANY-16442451

PATIENT
  Age: 53 Year
  Sex: Female

DRUGS (6)
  1. PARACETAMOL [Concomitant]
     Active Substance: ACETAMINOPHEN
     Indication: PAIN
     Dosage: UNK UNK, PRN
     Route: 065
  2. CELEBREX [Concomitant]
     Active Substance: CELECOXIB
     Indication: PRODUCT USED FOR UNKNOWN INDICATION
     Dosage: 1 IN MRN AND 1 IN NOON
     Route: 065
     Dates: start: 20111024, end: 20111026
  3. TAHOR [Concomitant]
     Active Substance: ATORVASTATIN CALCIUM
     Indication: PRODUCT USED FOR UNKNOWN INDICATION
     Route: 065
  4. MONOZECLAR [Suspect]
     Active Substance: CLARITHROMYCIN
     Indication: UPPER RESPIRATORY TRACT INFECTION
     Dosage: UNK
     Route: 048
     Dates: start: 20111024, end: 20111029
  5. FUNGIZONE [Suspect]
     Active Substance: AMPHOTERICIN B
     Indication: UPPER RESPIRATORY TRACT INFECTION
     Dosage: 2 TEA SPOONS-MRNG AND 2 TEA SPOONS-EVE.
     Route: 048
     Dates: start: 20111024, end: 20111029
  6. COLPOTROPHINE [Suspect]
     Active Substance: PROMESTRIENE
     Indication: PRODUCT USED FOR UNKNOWN INDICATION
     Dosage: VAGINA CAPSULE ADMINISTERED ON 21,25 + 30OCT11
     Route: 067
     Dates: start: 20111021, end: 20111030

REACTIONS (2)
  - Anaphylactic shock [Recovered/Resolved]
  - Product use issue [Unknown]

NARRATIVE: CASE EVENT DATE: 20111030
